FAERS Safety Report 5833657-9 (Version None)
Quarter: 2008Q3

REPORT INFORMATION
  Report Type: 
  Country: None (occurrence: None)
  Receive Date: 20080722
  Receipt Date: 20070913
  Transmission Date: 20090109
  Serious: Yes (Hospitalization)
  Sender: FDA-Public Use
  Company Number: 2007BI019468

PATIENT
  Age: 36 Year
  Sex: Female
  Weight: 98.8842 kg

DRUGS (3)
  1. AVONEX [Suspect]
     Indication: MULTIPLE SCLEROSIS
     Dosage: 7.5 UG;QW;IM; 15 UG;QW;IM; 30 UG;QW;IM
     Route: 030
     Dates: start: 20060501, end: 20060501
  2. AVONEX [Suspect]
     Indication: MULTIPLE SCLEROSIS
     Dosage: 7.5 UG;QW;IM; 15 UG;QW;IM; 30 UG;QW;IM
     Route: 030
     Dates: start: 20060501, end: 20060601
  3. AVONEX [Suspect]
     Indication: MULTIPLE SCLEROSIS
     Dosage: 7.5 UG;QW;IM; 15 UG;QW;IM; 30 UG;QW;IM
     Route: 030
     Dates: start: 20060601

REACTIONS (2)
  - ANAEMIA [None]
  - MULTIPLE SCLEROSIS RELAPSE [None]
